FAERS Safety Report 9351504 (Version 2)
Quarter: 2013Q3

REPORT INFORMATION
  Report Type: Spontaneous
  Country: US (occurrence: US)
  Receive Date: 20130617
  Receipt Date: 20130830
  Transmission Date: 20140515
  Serious: No
  Sender: FDA-Public Use
  Company Number: US-009507513-1306USA007259

PATIENT
  Sex: Female
  Weight: 86.17 kg

DRUGS (3)
  1. CLARITIN REDITABS 12HR [Suspect]
     Indication: SNEEZING
     Dosage: 5 MG, Q12H
     Route: 048
     Dates: start: 20130602, end: 20130610
  2. CLARITIN REDITABS 12HR [Suspect]
     Indication: THROAT IRRITATION
  3. AMLODIPINE [Concomitant]
     Indication: BLOOD PRESSURE
     Dosage: UNK, UNKNOWN

REACTIONS (1)
  - Drug ineffective [Unknown]
